FAERS Safety Report 10447227 (Version 1)
Quarter: 2014Q3

REPORT INFORMATION
  Report Type: Spontaneous
  Country: US (occurrence: None)
  Receive Date: 20140910
  Receipt Date: 20140910
  Transmission Date: 20150326
  Serious: No
  Sender: FDA-Public Use
  Company Number: None

PATIENT
  Age: 77 Year
  Sex: Male
  Weight: 87 kg

DRUGS (22)
  1. DECITABINE. [Suspect]
     Active Substance: DECITABINE
     Indication: WRONG DRUG ADMINISTERED
     Route: 042
     Dates: start: 20140805, end: 20140805
  2. AZACITIDINE. [Concomitant]
     Active Substance: AZACITIDINE
  3. ASPIRIN. [Concomitant]
     Active Substance: ASPIRIN
  4. BRIMONIDINE EYE DROPS [Concomitant]
  5. HCTZ [Concomitant]
     Active Substance: HYDROCHLOROTHIAZIDE
  6. LOSARTAN [Concomitant]
     Active Substance: LOSARTAN
  7. ROSUVASTATIN [Concomitant]
     Active Substance: ROSUVASTATIN
  8. COSOPT [Concomitant]
     Active Substance: DORZOLAMIDE HYDROCHLORIDE\TIMOLOL MALEATE
  9. OMEPRAZOLE. [Concomitant]
     Active Substance: OMEPRAZOLE
  10. DEXAMETHASONE. [Concomitant]
     Active Substance: DEXAMETHASONE
  11. AZACITIDINE. [Suspect]
     Active Substance: AZACITIDINE
     Indication: MYELODYSPLASTIC SYNDROME
     Route: 042
     Dates: start: 20140805, end: 20140805
  12. ADDERALL XR [Concomitant]
     Active Substance: AMPHETAMINE ASPARTATE\AMPHETAMINE SULFATE\DEXTROAMPHETAMINE SACCHARATE\DEXTROAMPHETAMINE SULFATE
  13. METFORMIN [Concomitant]
     Active Substance: METFORMIN HYDROCHLORIDE
  14. PILOCARPINE EYE DROPS [Concomitant]
  15. ONDANSETRON [Concomitant]
     Active Substance: ONDANSETRON
  16. ATENOLOL. [Concomitant]
     Active Substance: ATENOLOL
  17. AMLODIPINE [Concomitant]
     Active Substance: AMLODIPINE BESYLATE
  18. FINASTERIDE. [Concomitant]
     Active Substance: FINASTERIDE
  19. GLYBURIDE. [Concomitant]
     Active Substance: GLYBURIDE
  20. TERAZOSIN [Concomitant]
     Active Substance: TERAZOSIN\TERAZOSIN HYDROCHLORIDE
  21. TRAVOPROST EYE DROPS [Concomitant]
  22. FISH OIL [Concomitant]
     Active Substance: FISH OIL

REACTIONS (4)
  - Product packaging confusion [None]
  - Wrong drug administered [None]
  - Product container issue [None]
  - Incorrect dose administered [None]

NARRATIVE: CASE EVENT DATE: 20140805
